FAERS Safety Report 7508612-3 (Version None)
Quarter: 2011Q2

REPORT INFORMATION
  Report Type: 
  Country: None (occurrence: None)
  Receive Date: 20110527
  Receipt Date: 20110121
  Transmission Date: 20111010
  Serious: No
  Sender: FDA-Public Use
  Company Number: A0910048A

PATIENT
  Sex: Female

DRUGS (3)
  1. FLOLAN [Suspect]
     Dates: start: 20100517
  2. REVATIO [Concomitant]
     Dosage: 20MG THREE TIMES PER DAY
  3. TRACLEER [Concomitant]
     Dosage: 125MG TWICE PER DAY

REACTIONS (2)
  - PAIN IN EXTREMITY [None]
  - DIARRHOEA [None]
